FAERS Safety Report 22339763 (Version 2)
Quarter: 2023Q2

REPORT INFORMATION
  Report Type: Other
  Country: EG (occurrence: EG)
  Receive Date: 20230518
  Receipt Date: 20230602
  Transmission Date: 20230722
  Serious: Yes (Other)
  Sender: FDA-Public Use
  Company Number: EG-002147023-NVSC2023EG109931

PATIENT
  Age: 47 Year
  Sex: Female

DRUGS (6)
  1. LUCENTIS [Suspect]
     Active Substance: RANIBIZUMAB
     Indication: Retinal vein occlusion
     Dosage: (RIGHT EYE AS PER REPORTER AND IN RIGHT EYE AFTER 75 DAYS OF STARTING LUCENTIS AS PER THE REPORTER)
     Route: 050
     Dates: start: 2020, end: 202007
  2. BROLUCIZUMAB [Suspect]
     Active Substance: BROLUCIZUMAB
     Indication: Retinal vein occlusion
     Dosage: (IN RIGHT EYE)
     Route: 050
     Dates: start: 20230412, end: 20230412
  3. CORTISONE [Suspect]
     Active Substance: CORTISONE
     Indication: Product used for unknown indication
     Dosage: (RIGHT EYE)
     Route: 065
     Dates: end: 202007
  4. VIGAMOX [Concomitant]
     Active Substance: MOXIFLOXACIN HYDROCHLORIDE
     Indication: Product used for unknown indication
     Dosage: 1 DRP, 3 TIMES DAILY /WEEK
     Dates: start: 20230412
  5. BISOPROLOL FUMARATE [Concomitant]
     Active Substance: BISOPROLOL FUMARATE
     Indication: Hypertension
     Dosage: 1 DOSAGE FORM, QD (AT NIGHT DAILY)
  6. EYLEA [Concomitant]
     Active Substance: AFLIBERCEPT
     Indication: Product used for unknown indication
     Dosage: UNK
     Dates: start: 2021

REACTIONS (8)
  - Cataract [Recovered/Resolved]
  - Macular oedema [Recovered/Resolved]
  - Swelling of eyelid [Recovered/Resolved]
  - Vision blurred [Recovered/Resolved]
  - Visual impairment [Recovered/Resolved]
  - Ocular hypertension [Recovered/Resolved]
  - Off label use [Unknown]
  - Off label use [Unknown]

NARRATIVE: CASE EVENT DATE: 20200601
